FAERS Safety Report 6270773-4 (Version None)
Quarter: 2009Q3

REPORT INFORMATION
  Report Type: 
  Country: None (occurrence: None)
  Receive Date: 20090714
  Receipt Date: 20090701
  Transmission Date: 20100115
  Serious: Yes (Death, Hospitalization, Other)
  Sender: FDA-Public Use
  Company Number: RENA-1000481

PATIENT
  Age: 64 Year
  Sex: Male

DRUGS (7)
  1. RENAGEL [Suspect]
     Indication: HYPERPHOSPHATAEMIA
     Dosage: 0.25 G, QD, ORAL
     Route: 048
     Dates: start: 20090301, end: 20090301
  2. RENAGEL [Suspect]
     Dosage: 0.75 G, TID, ORAL
     Route: 048
     Dates: end: 20090501
  3. SULFAMETHOXAZOLE AND TRIMETHOPRIM [Concomitant]
  4. LASIX [Concomitant]
  5. CALCIUM CARBONATE (CALCIUM CARBONATE) [Concomitant]
  6. FOSMICIN (FOSFOMYCIN CALCIUM) [Concomitant]
  7. BIOFERMIN R (STREPTOCOCCUS FAECALIS) [Concomitant]

REACTIONS (5)
  - CARDIO-RESPIRATORY ARREST [None]
  - CONDITION AGGRAVATED [None]
  - HEPATIC FUNCTION ABNORMAL [None]
  - HEPATOMEGALY [None]
  - MULTIPLE MYELOMA [None]
